FAERS Safety Report 8883378 (Version 1)
Quarter: 2012Q4

REPORT INFORMATION
  Report Type: 
  Country: BR (occurrence: BR)
  Receive Date: 20121102
  Receipt Date: 20121102
  Transmission Date: 20130627
  Serious: Yes (Other)
  Sender: FDA-Public Use
  Company Number: BR-PFIZER INC-2012268772

PATIENT
  Age: 74 Year
  Sex: Male

DRUGS (1)
  1. XALATAN [Suspect]
     Indication: GLAUCOMA
     Dosage: 3 ug, 1x/day (1 drop in each eye 1x/day)
     Route: 047
     Dates: start: 20091025

REACTIONS (1)
  - Cataract [Unknown]
